FAERS Safety Report 4343938-6 (Version None)
Quarter: 2004Q2

REPORT INFORMATION
  Report Type: 
  Country: None (occurrence: None)
  Receive Date: 20040419
  Receipt Date: 20040406
  Transmission Date: 20050107
  Serious: Yes (Hospitalization)
  Sender: FDA-Public Use
  Company Number: US-JNJFOC-20040401189

PATIENT
  Age: 71 Year
  Sex: Female

DRUGS (6)
  1. INFLIXIMAB (INFLIXIMAB, RECOMBINANT) LYOPHILIZED POWDER [Suspect]
     Indication: RHEUMATOID ARTHRITIS
     Dosage: INTRAVENOUS
     Route: 042
     Dates: start: 20010820
  2. HYZAAR [Concomitant]
  3. SYNTHROID [Concomitant]
  4. ARAVA [Concomitant]
  5. LIPITOR [Concomitant]
  6. PRILOSEC [Concomitant]

REACTIONS (6)
  - CHILLS [None]
  - DIARRHOEA [None]
  - LUNG HYPERINFLATION [None]
  - NAUSEA [None]
  - NON-CARDIAC CHEST PAIN [None]
  - WHITE BLOOD CELL COUNT INCREASED [None]
